FAERS Safety Report 24716716 (Version 2)
Quarter: 2024Q4

REPORT INFORMATION
  Report Type: Spontaneous
  Country: RU (occurrence: RU)
  Receive Date: 20241210
  Receipt Date: 20241218
  Transmission Date: 20250115
  Serious: Yes (Other)
  Sender: NOVARTIS
  Company Number: RU-002147023-NVSC2024RU233692

PATIENT
  Age: 87 Year

DRUGS (1)
  1. DABRAFENIB [Suspect]
     Active Substance: DABRAFENIB
     Indication: Malignant melanoma
     Dosage: 300 MG, QD (INCREASE IN DAILY DOSE TO 300 MG/DAY)
     Route: 065
     Dates: start: 20230310

REACTIONS (8)
  - Pemphigoid [Recovering/Resolving]
  - Blister [Unknown]
  - Skin hypertrophy [Unknown]
  - Pain [Unknown]
  - Metastases to skin [Unknown]
  - Metastases to liver [Unknown]
  - Metastases to bone [Unknown]
  - Drug ineffective [Unknown]

NARRATIVE: CASE EVENT DATE: 20230301
